FAERS Safety Report 14094695 (Version 1)
Quarter: 2017Q4

REPORT INFORMATION
  Report Type: Spontaneous
  Country: US (occurrence: US)
  Receive Date: 20171016
  Receipt Date: 20171016
  Transmission Date: 20180321
  Serious: No
  Sender: FDA-Public Use
  Company Number: US-AMGEN-USASP2017044514

PATIENT
  Age: 55 Year
  Sex: Female
  Weight: 54 kg

DRUGS (4)
  1. PROLIA [Suspect]
     Active Substance: DENOSUMAB
     Indication: OSTEOPOROSIS POSTMENOPAUSAL
     Dosage: 60 MG, Q6MO
     Route: 058
     Dates: start: 201101
  2. CALCIUM [Concomitant]
     Active Substance: CALCIUM
  3. VITAMIN D [Concomitant]
     Active Substance: CHOLECALCIFEROL
  4. PROLIA [Suspect]
     Active Substance: DENOSUMAB
     Indication: DRUG THERAPY

REACTIONS (9)
  - Abdominal pain [Recovering/Resolving]
  - Phlebolith [Unknown]
  - Renal cyst [Unknown]
  - Fatigue [Unknown]
  - Urinary tract infection [Unknown]
  - Foot deformity [Unknown]
  - Off label use [Unknown]
  - Muscle spasms [Unknown]
  - Pain in extremity [Unknown]

NARRATIVE: CASE EVENT DATE: 20160727
